FAERS Safety Report 17010368 (Version 8)
Quarter: 2021Q2

REPORT INFORMATION
  Report Type: Report from Study
  Country: CN (occurrence: CN)
  Receive Date: 20191108
  Receipt Date: 20210405
  Transmission Date: 20210716
  Serious: Yes (Death, Hospitalization)
  Sender: FDA-Public Use
  Company Number: CN-ROCHE-2408103

PATIENT
  Age: 69 Year
  Sex: Male
  Weight: 59 kg

DRUGS (12)
  1. ASTRAGALUS MEMBRANACEUS [Concomitant]
     Active Substance: ASTRAGALUS PROPINQUUS ROOT\HERBALS
     Dates: start: 20190919, end: 201909
  2. ALBUMIN [Concomitant]
     Active Substance: ALBUMIN HUMAN
     Dates: start: 20191028, end: 20191101
  3. ALBUMIN [Concomitant]
     Active Substance: ALBUMIN HUMAN
     Dates: start: 20191122, end: 20191127
  4. AMBROXOL [Concomitant]
     Active Substance: AMBROXOL
     Dates: start: 201911, end: 20191128
  5. REDUCED GLUTATHIONE SODIUM [Concomitant]
     Active Substance: GLUTATHIONE
     Dates: start: 201911, end: 20191128
  6. FAT EMULSION NOS [Concomitant]
     Active Substance: EGG PHOSPHOLIPIDS\SAFFLOWER OIL\SOYBEAN OIL
     Dates: start: 20191028, end: 201911
  7. LICORICE. [Concomitant]
     Active Substance: LICORICE
     Dates: start: 20190919, end: 201909
  8. KUDZU ROOT [Concomitant]
     Dates: start: 20190919, end: 201909
  9. ASPERGILLUS ORYZAE [Concomitant]
     Dates: start: 20190806, end: 201908
  10. DOMPERIDONE [Concomitant]
     Active Substance: DOMPERIDONE
     Dates: start: 20190806, end: 2019
  11. ATEZOLIZUMAB. [Suspect]
     Active Substance: ATEZOLIZUMAB
     Indication: NON-SMALL CELL LUNG CANCER METASTATIC
     Route: 042
     Dates: start: 20190822, end: 20190822
  12. REDUCED GLUTATHIONE SODIUM [Concomitant]
     Active Substance: GLUTATHIONE
     Dates: start: 20190919, end: 20190924

REACTIONS (5)
  - Disease progression [Fatal]
  - Immune-mediated adverse reaction [Recovered/Resolved]
  - Pneumonia [Fatal]
  - Urticaria [Recovered/Resolved]
  - Drug ineffective [Unknown]

NARRATIVE: CASE EVENT DATE: 20190830
